FAERS Safety Report 25183197 (Version 1)
Quarter: 2025Q2

REPORT INFORMATION
  Report Type: Spontaneous
  Country: IT (occurrence: IT)
  Receive Date: 20250410
  Receipt Date: 20250410
  Transmission Date: 20250717
  Serious: Yes (Hospitalization, Other)
  Sender: AUROBINDO
  Company Number: IT-MINISAL02-1032502

PATIENT
  Age: 16 Year
  Sex: Female

DRUGS (2)
  1. SERTRALINE [Suspect]
     Active Substance: SERTRALINE HYDROCHLORIDE
     Indication: Borderline personality disorder
     Route: 048
     Dates: start: 20250221, end: 20250221
  2. XANAX [Concomitant]
     Active Substance: ALPRAZOLAM
     Indication: Borderline personality disorder
     Dosage: 10 GTT DROPS, ONCE A DAY
     Route: 048

REACTIONS (3)
  - Intentional self-injury [Unknown]
  - Drug abuse [Recovering/Resolving]
  - Faeces soft [Recovered/Resolved]

NARRATIVE: CASE EVENT DATE: 20250221
